FAERS Safety Report 5936201-0 (Version None)
Quarter: 2008Q4

REPORT INFORMATION
  Report Type: 
  Country: None (occurrence: None)
  Receive Date: 20081030
  Receipt Date: 20081022
  Transmission Date: 20090506
  Serious: Yes (Life-Threatening, Hospitalization)
  Sender: FDA-Public Use
  Company Number: FR-SANOFI-SYNTHELABO-A01200812378

PATIENT
  Sex: Male
  Weight: 68 kg

DRUGS (1)
  1. PLAVIX [Suspect]
     Indication: ARTERIOSCLEROSIS
     Dosage: 75 MG
     Route: 048
     Dates: start: 20030201, end: 20040701

REACTIONS (2)
  - DUODENAL ULCER HAEMORRHAGE [None]
  - PEPTIC ULCER PERFORATION [None]
